FAERS Safety Report 13710662 (Version 1)
Quarter: 2017Q3

REPORT INFORMATION
  Report Type: Spontaneous
  Country: US (occurrence: US)
  Receive Date: 20170702
  Receipt Date: 20170702
  Transmission Date: 20171127
  Serious: Yes (Hospitalization)
  Sender: FDA-Public Use
  Company Number: None

PATIENT
  Age: 76 Year
  Sex: Female
  Weight: 51.75 kg

DRUGS (5)
  1. CALCIUM WITH VITAMIN D [Suspect]
     Active Substance: CALCIUM\VITAMIN D
  2. FISH OIL [Concomitant]
     Active Substance: FISH OIL
  3. PRADAX [Concomitant]
     Active Substance: DABIGATRAN ETEXILATE MESYLATE
  4. ZOLEDRONIC ACID IVPB 5 MG [Suspect]
     Active Substance: ZOLEDRONIC ACID
     Indication: OSTEOPOROSIS
     Dates: start: 20170629, end: 20170629
  5. WOMEN^S HIGH POTENCY MULTIPLE VITAMIN AND MINERAL [Concomitant]

REACTIONS (3)
  - Diarrhoea [None]
  - Atrial fibrillation [None]
  - Blood pressure increased [None]

NARRATIVE: CASE EVENT DATE: 20170630
